FAERS Safety Report 5094149-0 (Version None)
Quarter: 2006Q3

REPORT INFORMATION
  Report Type: 
  Country: None (occurrence: None)
  Receive Date: 20060829
  Receipt Date: 20060814
  Transmission Date: 20061208
  Serious: Yes (Hospitalization)
  Sender: FDA-Public Use
  Company Number: 112141ISR

PATIENT
  Age: 67 Year
  Sex: Female

DRUGS (12)
  1. DOXAZOSIN MESYLATE [Suspect]
     Indication: BLOOD PRESSURE
     Dosage: ORAL
     Route: 048
     Dates: start: 20060103, end: 20060501
  2. ACETYLSALICYLIC ACID [Concomitant]
  3. ATORVASTATIN CALCIUM [Concomitant]
  4. BENDROFLUMETHIAZIDE [Concomitant]
  5. BUDESONIDE [Concomitant]
  6. DOXAZOSIN MESYLATE [Concomitant]
  7. FLUTICASONE PROPIONATE [Concomitant]
  8. FLUTICASONE PROPIONATE [Concomitant]
  9. LEVOTHYROXINE SODIUM [Concomitant]
  10. PERINDOPRIL ERBUMINE [Concomitant]
  11. ALBUTEROL SPIROS [Concomitant]
  12. SALMETEROL [Concomitant]

REACTIONS (1)
  - ATRIAL FIBRILLATION [None]
